FAERS Safety Report 8378647-X (Version None)
Quarter: 2012Q2

REPORT INFORMATION
  Report Type: 
  Country: None (occurrence: None)
  Receive Date: 20120522
  Receipt Date: 20111125
  Transmission Date: 20120825
  Serious: No
  Sender: FDA-Public Use
  Company Number: US-ASTRAZENECA-2011SE71924

PATIENT
  Age: 35 Year
  Sex: Female

DRUGS (3)
  1. PREVACID [Suspect]
     Route: 065
  2. NEXIUM [Concomitant]
  3. PRILOSEC [Suspect]
     Route: 048

REACTIONS (2)
  - DRUG INEFFECTIVE [None]
  - BREAKTHROUGH PAIN [None]
